FAERS Safety Report 8271036-8 (Version None)
Quarter: 2012Q2

REPORT INFORMATION
  Report Type: 
  Country: None (occurrence: None)
  Receive Date: 20120410
  Receipt Date: 20120404
  Transmission Date: 20120825
  Serious: Yes (Other)
  Sender: FDA-Public Use
  Company Number: US-ROCHE-1056641

PATIENT
  Sex: Female

DRUGS (5)
  1. FOSAMAX [Suspect]
     Route: 065
     Dates: start: 20080501, end: 20080801
  2. FOSAMAX [Suspect]
     Route: 065
     Dates: start: 20081001, end: 20090901
  3. FOSAMAX [Suspect]
     Indication: OSTEOPOROSIS
     Route: 065
     Dates: start: 20000101, end: 20061101
  4. FOSAMAX [Suspect]
     Route: 065
     Dates: start: 20091001, end: 20100501
  5. BONIVA [Suspect]
     Indication: OSTEOPOROSIS
     Dates: start: 20070201, end: 20080501

REACTIONS (5)
  - EMOTIONAL DISTRESS [None]
  - ANXIETY [None]
  - LOW TURNOVER OSTEOPATHY [None]
  - FEMUR FRACTURE [None]
  - STRESS FRACTURE [None]
